FAERS Safety Report 9202079 (Version 2)
Quarter: 2013Q2

REPORT INFORMATION
  Report Type: Report from Study
  Country: US (occurrence: US)
  Receive Date: 20130401
  Receipt Date: 20130513
  Transmission Date: 20140414
  Serious: Yes (Hospitalization)
  Sender: FDA-Public Use
  Company Number: US-GLAXOSMITHKLINE-Z0016751B

PATIENT
  Age: 78 Year
  Sex: Female

DRUGS (6)
  1. OFATUMUMAB [Suspect]
     Indication: B-CELL LYMPHOMA
     Dosage: 1000MG CYCLIC
     Route: 042
     Dates: start: 20120222
  2. BENDAMUSTINE [Suspect]
     Indication: B-CELL LYMPHOMA
     Dosage: 90MGM2 CYCLIC
     Route: 042
     Dates: start: 20120223, end: 20120719
  3. DEXILANT [Concomitant]
     Indication: ABDOMINAL DISCOMFORT
     Dosage: 60MG PER DAY
     Route: 048
     Dates: start: 20130214
  4. MIRALAX [Concomitant]
     Indication: DIARRHOEA
     Dosage: 17G PER DAY
     Route: 048
     Dates: start: 20130214
  5. SUCRALFATE [Concomitant]
     Indication: GASTRIC ULCER
     Dosage: 1G FOUR TIMES PER DAY
     Route: 048
     Dates: start: 20130214
  6. PHENYTOIN [Concomitant]
     Indication: CONVULSION
     Dosage: 200MG TWICE PER DAY
     Route: 048
     Dates: start: 20130214

REACTIONS (1)
  - Gastric ulcer [Not Recovered/Not Resolved]
